FAERS Safety Report 9838609 (Version 1)
Quarter: 2014Q1

REPORT INFORMATION
  Report Type: Spontaneous
  Country: US (occurrence: US)
  Receive Date: 20140123
  Receipt Date: 20140123
  Transmission Date: 20141002
  Serious: Yes (Other)
  Sender: FDA-Public Use
  Company Number: US-BRISTOL-MYERS SQUIBB COMPANY-20019816

PATIENT
  Age: 61 Year
  Sex: Female
  Weight: 55.33 kg

DRUGS (6)
  1. ORENCIA [Suspect]
     Indication: RHEUMATOID ARTHRITIS
     Dosage: 14NOV2013:31 INF
     Route: 042
  2. METHOTREXATE [Concomitant]
  3. FOLIC ACID [Concomitant]
  4. PREMPRO [Concomitant]
  5. CITRACAL [Concomitant]
  6. THERATEARS [Concomitant]

REACTIONS (2)
  - Sjogren^s syndrome [Unknown]
  - Hearing impaired [Not Recovered/Not Resolved]
